FAERS Safety Report 24026976 (Version 1)
Quarter: 2024Q2

REPORT INFORMATION
  Report Type: Spontaneous
  Country: US (occurrence: US)
  Receive Date: 20240628
  Receipt Date: 20240628
  Transmission Date: 20240716
  Serious: No
  Sender: FDA-Public Use
  Company Number: US-ROCHE-3570821

PATIENT
  Sex: Female

DRUGS (2)
  1. ALECENSA [Suspect]
     Active Substance: ALECTINIB HYDROCHLORIDE
     Indication: Lung neoplasm malignant
     Route: 048
     Dates: start: 201902
  2. ALECENSA [Suspect]
     Active Substance: ALECTINIB HYDROCHLORIDE
     Indication: Malignant neoplasm of unknown primary site

REACTIONS (7)
  - Fatigue [Unknown]
  - Pain [Unknown]
  - Neuropathy peripheral [Unknown]
  - Sinus disorder [Unknown]
  - Headache [Unknown]
  - Red blood cell count decreased [Unknown]
  - Photosensitivity reaction [Unknown]
